FAERS Safety Report 4874017-7 (Version None)
Quarter: 2006Q1

REPORT INFORMATION
  Report Type: 
  Country: None (occurrence: None)
  Receive Date: 20060106
  Receipt Date: 20030804
  Transmission Date: 20060701
  Serious: Yes (Death, Hospitalization)
  Sender: FDA-Public Use
  Company Number: 200317057US

PATIENT
  Sex: Female
  Weight: 53.2 kg

DRUGS (1)
  1. ARAVA [Suspect]
     Indication: RHEUMATOID ARTHRITIS
     Dosage: DOSE: UNK
     Dates: start: 20020101, end: 20030729

REACTIONS (12)
  - AMNESIA [None]
  - COLLAPSE OF LUNG [None]
  - DEPRESSION [None]
  - DIARRHOEA [None]
  - HYPERTENSION [None]
  - INTESTINAL OBSTRUCTION [None]
  - METRORRHAGIA [None]
  - MYOCARDIAL INFARCTION [None]
  - NAUSEA [None]
  - RASH [None]
  - UTERINE CANCER [None]
  - WEIGHT DECREASED [None]
